FAERS Safety Report 24345100 (Version 1)
Quarter: 2024Q3

REPORT INFORMATION
  Report Type: Report from Study
  Country: CL (occurrence: CL)
  Receive Date: 20240920
  Receipt Date: 20240920
  Transmission Date: 20241017
  Serious: Yes (Other)
  Sender: NOVARTIS
  Company Number: CL-002147023-NVSC2024CL041443

PATIENT
  Age: 35 Year
  Sex: Female

DRUGS (10)
  1. KISQALI [Suspect]
     Active Substance: RIBOCICLIB
     Indication: Breast cancer stage IV
     Dosage: 600 MG, QD
     Route: 048
     Dates: start: 20201007
  2. KISQALI [Suspect]
     Active Substance: RIBOCICLIB
     Indication: Metastases to bone
     Dosage: 400 MG, QD
     Route: 048
  3. KISQALI [Suspect]
     Active Substance: RIBOCICLIB
     Dosage: 400 MG, QD
     Route: 048
     Dates: start: 20240327
  4. KISQALI [Suspect]
     Active Substance: RIBOCICLIB
     Dosage: 200 MG, UNKNOWN
     Route: 048
  5. KISQALI [Suspect]
     Active Substance: RIBOCICLIB
     Dosage: 2 DOSAGE FORM, QD (400MG)
     Route: 048
     Dates: start: 20240523
  6. KISQALI [Suspect]
     Active Substance: RIBOCICLIB
     Dosage: 2 DOSAGE FORM
     Route: 048
     Dates: start: 20240626
  7. KISQALI [Suspect]
     Active Substance: RIBOCICLIB
     Dosage: 2 DOSAGE FORM (400 MG), QD
     Route: 048
     Dates: start: 20240724
  8. KISQALI [Suspect]
     Active Substance: RIBOCICLIB
     Dosage: 200 MG (EVERY 28 DAYS)
     Route: 048
  9. LETROZOLE [Suspect]
     Active Substance: LETROZOLE
     Indication: Product used for unknown indication
     Dosage: UNK
     Route: 065
  10. FULVESTRANT [Concomitant]
     Active Substance: FULVESTRANT
     Indication: Product used for unknown indication
     Dosage: 250X2, EVERY 28 DAYS
     Route: 065

REACTIONS (12)
  - Neutropenia [Unknown]
  - Breast cancer [Unknown]
  - Malignant neoplasm progression [Unknown]
  - Decreased immune responsiveness [Unknown]
  - Cardiac disorder [Unknown]
  - Anxiety [Unknown]
  - Skin lesion [Unknown]
  - Chest pain [Unknown]
  - Papilloma viral infection [Unknown]
  - Cervical dysplasia [Unknown]
  - Drug ineffective [Unknown]
  - Off label use [Unknown]
